FAERS Safety Report 23251472 (Version 1)
Quarter: 2023Q4

REPORT INFORMATION
  Report Type: Spontaneous
  Country: CN (occurrence: CN)
  Receive Date: 20231201
  Receipt Date: 20231201
  Transmission Date: 20240109
  Serious: Yes (Other)
  Sender: FDA-Public Use
  Company Number: CN-ALCON LABORATORIES-ALC2023CN005394

PATIENT
  Age: 68 Year
  Sex: Female
  Weight: 58 kg

DRUGS (1)
  1. FLUORESCITE [Suspect]
     Active Substance: FLUORESCEIN SODIUM
     Indication: Diagnostic procedure
     Dosage: 0.3 G, QD
     Route: 042
     Dates: start: 20231013, end: 20231013

REACTIONS (2)
  - Throat irritation [Recovering/Resolving]
  - Asthenia [Recovering/Resolving]

NARRATIVE: CASE EVENT DATE: 20231013
